FAERS Safety Report 9722233 (Version 2)
Quarter: 2013Q4

REPORT INFORMATION
  Report Type: Spontaneous
  Country: MX (occurrence: MX)
  Receive Date: 20131202
  Receipt Date: 20131204
  Transmission Date: 20140711
  Serious: Yes (Death, Other)
  Sender: FDA-Public Use
  Company Number: MX-JNJFOC-20131112920

PATIENT
  Sex: 0

DRUGS (6)
  1. DOXORUBICIN HYDROCHLORIDE [Suspect]
     Indication: SARCOMA
     Dosage: 50 G/M2 DILUTED IN 400 ML/M2 OF DEXTROSE 5% SOLUTION ADMINISTERED IN 3H
     Route: 042
  2. DOXORUBICIN HYDROCHLORIDE [Suspect]
     Indication: RHABDOMYOSARCOMA
     Dosage: 50 G/M2 DILUTED IN 400 ML/M2 OF DEXTROSE 5% SOLUTION ADMINISTERED IN 3H
     Route: 042
  3. DOXORUBICIN HYDROCHLORIDE [Suspect]
     Indication: EWING^S SARCOMA
     Dosage: 50 G/M2 DILUTED IN 400 ML/M2 OF DEXTROSE 5% SOLUTION ADMINISTERED IN 3H
     Route: 042
  4. RANITIDINE [Concomitant]
     Indication: PREMEDICATION
     Route: 065
  5. DEXAMETHASONE [Concomitant]
     Indication: PREMEDICATION
     Route: 065
  6. CHLOROPYRAMINE [Concomitant]
     Indication: PREMEDICATION
     Route: 065

REACTIONS (4)
  - Sepsis [Fatal]
  - Disease progression [Fatal]
  - Haematotoxicity [Unknown]
  - Off label use [Unknown]
